FAERS Safety Report 8423440-2 (Version None)
Quarter: 2012Q2

REPORT INFORMATION
  Report Type: 
  Country: None (occurrence: None)
  Receive Date: 20120608
  Receipt Date: 20120530
  Transmission Date: 20120825
  Serious: Yes (Other)
  Sender: FDA-Public Use
  Company Number: US-ASTRAZENECA-2012SE35136

PATIENT
  Sex: Female

DRUGS (14)
  1. KLOR-CON M10 [Concomitant]
     Dosage: 10 MEQ, PARTICLES, 1 DAILY
  2. LEXAPRO [Concomitant]
  3. RESTORIL [Concomitant]
  4. ADDERALL 5 [Concomitant]
  5. FLONASE [Concomitant]
     Dosage: 50 MCG/ACTUATION SPRAY, 2 DAILY
     Route: 045
  6. HYDROXYZINE [Concomitant]
  7. LAMICTAL [Concomitant]
  8. LYRICA [Concomitant]
  9. SINGULAIR [Concomitant]
  10. DIOVAN [Concomitant]
  11. ELAVIL [Suspect]
     Route: 065
  12. SAPHRIS [Concomitant]
     Route: 060
  13. ZOMIG-ZMT [Suspect]
     Route: 048
  14. PROTONIX [Concomitant]

REACTIONS (7)
  - GASTROOESOPHAGEAL REFLUX DISEASE [None]
  - INTERVERTEBRAL DISC DISORDER [None]
  - MIGRAINE [None]
  - DRUG HYPERSENSITIVITY [None]
  - CONVULSION [None]
  - BIPOLAR DISORDER [None]
  - DEPRESSION [None]
